FAERS Safety Report 7071789-0 (Version None)
Quarter: 2010Q4

REPORT INFORMATION
  Report Type: 
  Country: None (occurrence: None)
  Receive Date: 20101029
  Receipt Date: 20091203
  Transmission Date: 20110411
  Serious: No
  Sender: FDA-Public Use
  Company Number: A0812970A

PATIENT
  Age: 58 Year
  Sex: Male

DRUGS (9)
  1. ADVAIR DISKUS 100/50 [Suspect]
     Indication: CHRONIC OBSTRUCTIVE PULMONARY DISEASE
     Route: 055
     Dates: start: 20040101
  2. COMBIVENT [Concomitant]
  3. SPIRIVA [Concomitant]
  4. FLUTICASONE PROPIONATE [Concomitant]
     Route: 045
  5. RISPERDAL [Concomitant]
  6. XANAX [Concomitant]
  7. ROZEREM [Concomitant]
  8. NEXIUM [Concomitant]
  9. PRAVASTATIN [Concomitant]

REACTIONS (3)
  - DYSPNOEA [None]
  - OVERDOSE [None]
  - PRODUCT QUALITY ISSUE [None]
